FAERS Safety Report 23873411 (Version 4)
Quarter: 2024Q3

REPORT INFORMATION
  Report Type: Spontaneous
  Country: US (occurrence: US)
  Receive Date: 20240520
  Receipt Date: 20240823
  Transmission Date: 20241017
  Serious: No
  Sender: PFIZER
  Company Number: US-PFIZER INC-202400106918

PATIENT
  Age: 5 Year
  Sex: Male
  Weight: 12.925 kg

DRUGS (1)
  1. GENOTROPIN [Suspect]
     Active Substance: SOMATROPIN
     Indication: Small for dates baby
     Dosage: 0.5 MG, DAILY

REACTIONS (4)
  - Device physical property issue [Unknown]
  - Device leakage [Unknown]
  - Drug dose omission by device [Unknown]
  - Injection site extravasation [Unknown]
